FAERS Safety Report 21551424 (Version 4)
Quarter: 2024Q1

REPORT INFORMATION
  Report Type: Report from Study
  Country: US (occurrence: US)
  Receive Date: 20221103
  Receipt Date: 20240319
  Transmission Date: 20240409
  Serious: No
  Sender: FDA-Public Use
  Company Number: US-ACADIA PHARMACEUTICALS INC.-ACA-2022-PIM-001082

PATIENT
  Sex: Male

DRUGS (5)
  1. NUPLAZID [Suspect]
     Active Substance: PIMAVANSERIN TARTRATE
     Indication: Parkinson^s disease
     Dosage: 34 MILLIGRAM, QD
     Route: 048
     Dates: start: 20220105
  2. NUPLAZID [Suspect]
     Active Substance: PIMAVANSERIN TARTRATE
     Dosage: 34 MILLIGRAM, QD
     Route: 048
  3. NUPLAZID [Suspect]
     Active Substance: PIMAVANSERIN TARTRATE
     Dosage: 34 MILLIGRAM, QD
     Route: 048
  4. NUPLAZID [Suspect]
     Active Substance: PIMAVANSERIN TARTRATE
     Dosage: 34 MILLIGRAM, QD
     Route: 048
  5. NOURIANZ [Concomitant]
     Active Substance: ISTRADEFYLLINE

REACTIONS (7)
  - Product dose omission issue [Unknown]
  - Nonspecific reaction [Unknown]
  - Memory impairment [Unknown]
  - Product dose omission issue [Recovered/Resolved]
  - Product dose omission issue [Not Recovered/Not Resolved]
  - Product dose omission issue [Recovered/Resolved]
  - Drug ineffective [Not Recovered/Not Resolved]
